FAERS Safety Report 16442439 (Version 1)
Quarter: 2019Q2

REPORT INFORMATION
  Report Type: Spontaneous
  Country: GB (occurrence: GB)
  Receive Date: 20190617
  Receipt Date: 20190617
  Transmission Date: 20190711
  Serious: Yes (Other)
  Sender: FDA-Public Use
  Company Number: GB-PFIZER INC-2019253315

PATIENT
  Age: 80 Year
  Sex: Female
  Weight: 53 kg

DRUGS (10)
  1. FERROUS FUMARATE [Concomitant]
     Active Substance: FERROUS FUMARATE
     Dosage: 630 MG, 1X/DAY
     Dates: start: 20170920
  2. AMLODIPINE [Concomitant]
     Active Substance: AMLODIPINE BESYLATE
     Dosage: 10 MG, 1X/DAY
     Dates: start: 20170901
  3. ROSUVASTATIN. [Concomitant]
     Active Substance: ROSUVASTATIN
     Dosage: 5 MG, 1X/DAY
     Dates: start: 20171108
  4. CLOPIDOGREL [Concomitant]
     Active Substance: CLOPIDOGREL BISULFATE
     Dosage: 75 MG, 1X/DAY (LONG-TERM)
     Dates: start: 20170901
  5. ATORVASTATIN [Suspect]
     Active Substance: ATORVASTATIN
     Dosage: 20 MG, UNK
     Route: 048
  6. LOSARTAN. [Concomitant]
     Active Substance: LOSARTAN
     Dosage: 50 MG, 1X/DAY (BOOK BLOOD TEST FOR TWO WEEKS AFTER STARTING)
     Dates: start: 20170901
  7. LORATADINE. [Concomitant]
     Active Substance: LORATADINE
     Dosage: 10 MG, 1X/DAY
     Dates: start: 20170918
  8. PHENYTOIN SODIUM. [Concomitant]
     Active Substance: PHENYTOIN SODIUM
     Dosage: 50 MG, 1X/DAY
     Dates: start: 20170901
  9. PHENYTOIN SODIUM. [Concomitant]
     Active Substance: PHENYTOIN SODIUM
     Dosage: 100 MG, 1X/DAY
     Dates: start: 20170901
  10. LEVOTHYROXINE. [Concomitant]
     Active Substance: LEVOTHYROXINE
     Dosage: 1 DF, 1X/DAY (MORNING. 50 AND 100MG.)
     Dates: start: 20170901

REACTIONS (4)
  - Nightmare [Unknown]
  - Musculoskeletal stiffness [Unknown]
  - Middle insomnia [Unknown]
  - Initial insomnia [Unknown]
